FAERS Safety Report 17460759 (Version 1)
Quarter: 2020Q1

REPORT INFORMATION
  Report Type: Spontaneous
  Country: US (occurrence: US)
  Receive Date: 20200213
  Receipt Date: 20200213
  Transmission Date: 20200409
  Serious: No
  Sender: FDA-Public Use
  Company Number: None

PATIENT
  Age: 75 Year
  Sex: Male

DRUGS (1)
  1. AMBRISENTAN 5MG TABLETS 30/BO: 5MG [Suspect]
     Active Substance: AMBRISENTAN
     Indication: PULMONARY ARTERIAL HYPERTENSION
     Route: 048
     Dates: start: 20200120, end: 20200123

REACTIONS (5)
  - Dyspnoea [None]
  - Cough [None]
  - Weight increased [None]
  - Fatigue [None]
  - Sputum discoloured [None]

NARRATIVE: CASE EVENT DATE: 20200123
